FAERS Safety Report 16761491 (Version 1)
Quarter: 2019Q3

REPORT INFORMATION
  Report Type: Spontaneous
  Country: US (occurrence: US)
  Receive Date: 20190830
  Receipt Date: 20190830
  Transmission Date: 20191005
  Serious: No
  Sender: FDA-Public Use
  Company Number: US-EMD SERONO-9103000

PATIENT
  Age: 76 Year
  Sex: Female
  Weight: 77 kg

DRUGS (3)
  1. BYETTA [Concomitant]
     Active Substance: EXENATIDE
     Indication: TYPE 2 DIABETES MELLITUS
     Route: 058
  2. GLUCOPHAGE XR [Suspect]
     Active Substance: METFORMIN HYDROCHLORIDE
     Indication: TYPE 2 DIABETES MELLITUS
     Route: 048
     Dates: start: 2015, end: 201908
  3. GLIMEPIRIDE. [Concomitant]
     Active Substance: GLIMEPIRIDE
     Indication: TYPE 2 DIABETES MELLITUS
     Route: 058

REACTIONS (4)
  - Blood glucose increased [Unknown]
  - Product availability issue [Unknown]
  - Drug ineffective [Unknown]
  - Stress [Unknown]

NARRATIVE: CASE EVENT DATE: 201808
